FAERS Safety Report 12429339 (Version 3)
Quarter: 2016Q3

REPORT INFORMATION
  Report Type: Spontaneous
  Country: US (occurrence: US)
  Receive Date: 20160602
  Receipt Date: 20160725
  Transmission Date: 20161109
  Serious: Yes (Hospitalization)
  Sender: FDA-Public Use
  Company Number: US-JNJFOC-20160528511

PATIENT
  Age: 62 Year
  Sex: Male

DRUGS (1)
  1. XARELTO [Suspect]
     Active Substance: RIVAROXABAN
     Indication: THROMBOSIS
     Route: 048
     Dates: start: 20150424, end: 20150507

REACTIONS (3)
  - Thrombosis [Unknown]
  - Urinary retention [Unknown]
  - Urinary bladder haemorrhage [Unknown]

NARRATIVE: CASE EVENT DATE: 20150507
